FAERS Safety Report 5357872-6 (Version None)
Quarter: 2007Q2

REPORT INFORMATION
  Report Type: 
  Country: None (occurrence: None)
  Receive Date: 20070614
  Receipt Date: 20070604
  Transmission Date: 20071010
  Serious: Yes (Hospitalization)
  Sender: FDA-Public Use
  Company Number: CN-MERCK-0705CHN00004

PATIENT
  Age: 57 Year
  Sex: Male

DRUGS (4)
  1. PROSCAR [Suspect]
     Indication: BENIGN PROSTATIC HYPERPLASIA
     Route: 048
     Dates: start: 20070426, end: 20070426
  2. PROSCAR [Suspect]
     Route: 048
     Dates: start: 20070503, end: 20070503
  3. PROSCAR [Suspect]
     Route: 048
     Dates: start: 20070507, end: 20070507
  4. TAMSULOSIN HYDROCHLORIDE [Concomitant]
     Indication: BENIGN PROSTATIC HYPERPLASIA
     Route: 048
     Dates: start: 20070401, end: 20070401

REACTIONS (3)
  - DRUG INEFFECTIVE [None]
  - NEPHRITIS [None]
  - PROSTATE CANCER STAGE 0 [None]
